FAERS Safety Report 8223693-X (Version None)
Quarter: 2012Q1

REPORT INFORMATION
  Report Type: 
  Country: None (occurrence: None)
  Receive Date: 20120307
  Receipt Date: 20110622
  Transmission Date: 20120608
  Serious: No
  Sender: FDA-Public Use
  Company Number: PHHY2011US09348

PATIENT
  Age: 17 Year
  Sex: Female
  Weight: 89 kg

DRUGS (7)
  1. KLONOPIN [Concomitant]
  2. AFINITOR [Suspect]
     Indication: TUBEROUS SCLEROSIS
     Dosage: 10 MG, QD, ORAL
     Route: 048
     Dates: start: 20110131
  3. AFINITOR [Suspect]
     Indication: ASTROCYTOMA
     Dosage: 10 MG, QD, ORAL
     Route: 048
     Dates: start: 20110131
  4. PRILOSEC [Concomitant]
  5. SABRIL [Concomitant]
  6. TOPAMAX [Concomitant]
  7. KEPPRA [Concomitant]

REACTIONS (5)
  - POLLAKIURIA [None]
  - MASS [None]
  - RASH GENERALISED [None]
  - SWELLING FACE [None]
  - DERMATITIS CONTACT [None]
